FAERS Safety Report 6197501-5 (Version None)
Quarter: 2009Q2

REPORT INFORMATION
  Report Type: 
  Country: None (occurrence: None)
  Receive Date: 20090521
  Receipt Date: 20090512
  Transmission Date: 20091009
  Serious: Yes (Hospitalization, Other)
  Sender: FDA-Public Use
  Company Number: AU-JNJFOC-20090307564

PATIENT
  Age: 42 Year
  Sex: Female

DRUGS (7)
  1. REMICADE [Suspect]
     Dosage: 7TH INFUSION (WEEK 38)
     Route: 042
  2. REMICADE [Suspect]
     Dosage: ARTHRITIC SYMPTOMS WITH 6TH INFUSION (WEEK 30)
     Route: 042
  3. REMICADE [Suspect]
     Dosage: 5TH INFUSION (WEEK 22)
     Route: 042
  4. REMICADE [Suspect]
     Dosage: INFUSION 14 (WEEK)
     Route: 042
  5. REMICADE [Suspect]
     Dosage: INFUSION 6 (WEEK)
     Route: 042
  6. REMICADE [Suspect]
     Dosage: INFUSION 2 (WEEK)
     Route: 042
  7. REMICADE [Suspect]
     Indication: PSORIASIS
     Dosage: INFUSION 0 (WEEK)
     Route: 042

REACTIONS (2)
  - LUPUS-LIKE SYNDROME [None]
  - PSORIASIS [None]
